FAERS Safety Report 12727981 (Version 2)
Quarter: 2016Q3

REPORT INFORMATION
  Report Type: Spontaneous
  Country: US (occurrence: US)
  Receive Date: 20160909
  Receipt Date: 20160909
  Transmission Date: 20161109
  Serious: No
  Sender: FDA-Public Use
  Company Number: US-ASTELLAS-2016US029367

PATIENT
  Sex: Male

DRUGS (1)
  1. CRESEMBA [Suspect]
     Active Substance: ISAVUCONAZONIUM SULFATE
     Indication: CANDIDA INFECTION
     Route: 065
     Dates: start: 20160726

REACTIONS (5)
  - Skin exfoliation [Unknown]
  - Off label use [Unknown]
  - Dysgeusia [Unknown]
  - Nausea [Unknown]
  - Wrong technique in product usage process [Unknown]
